FAERS Safety Report 6490216-5 (Version None)
Quarter: 2009Q4

REPORT INFORMATION
  Report Type: 
  Country: None (occurrence: None)
  Receive Date: 20091211
  Receipt Date: 20091208
  Transmission Date: 20100525
  Serious: Yes (Other)
  Sender: FDA-Public Use
  Company Number: NO-ROCHE-671999

PATIENT
  Sex: Female

DRUGS (2)
  1. TAMIFLU [Suspect]
     Dosage: FREQUENCY: TWICE A DAY
     Route: 048
     Dates: start: 20091106, end: 20091109
  2. AFIPRAN [Concomitant]
     Indication: NAUSEA
     Dosage: FREQUENCY: 2 - 3 TIMES DAILY
     Route: 048
     Dates: start: 20091106, end: 20091109

REACTIONS (2)
  - CONFUSIONAL STATE [None]
  - CONVULSION [None]
